FAERS Safety Report 17521460 (Version 1)
Quarter: 2020Q1

REPORT INFORMATION
  Report Type: Report from Study
  Country: US (occurrence: US)
  Receive Date: 20200310
  Receipt Date: 20200310
  Transmission Date: 20200409
  Serious: No
  Sender: FDA-Public Use
  Company Number: US-KYOWAKIRIN-2020BKK003364

PATIENT

DRUGS (2)
  1. GRANISETRON [Suspect]
     Active Substance: GRANISETRON
     Indication: PROPHYLAXIS OF NAUSEA AND VOMITING
     Dosage: APPLY PATCH TO SKIN FOR 1 DOSE
     Route: 061
     Dates: start: 202002
  2. GRANISETRON [Suspect]
     Active Substance: GRANISETRON
     Dosage: APPLY PATCH TO SKIN FOR 1 DOSE
     Route: 061
     Dates: start: 202001, end: 202001

REACTIONS (3)
  - Wrong technique in product usage process [Unknown]
  - Product adhesion issue [Unknown]
  - Drug ineffective [Unknown]

NARRATIVE: CASE EVENT DATE: 202002
